FAERS Safety Report 6438266-9 (Version None)
Quarter: 2009Q4

REPORT INFORMATION
  Report Type: 
  Country: None (occurrence: None)
  Receive Date: 20091112
  Receipt Date: 20091030
  Transmission Date: 20100525
  Serious: Yes (Other)
  Sender: FDA-Public Use
  Company Number: PHEH2009US13456

PATIENT
  Sex: Male

DRUGS (5)
  1. DIOVAN HCT [Suspect]
     Dosage: VAL80MG/HCT12.5MG, UNK
     Dates: start: 20090905, end: 20090925
  2. LISINOPRIL [Suspect]
     Dosage: UNK
     Dates: start: 20090616, end: 20090904
  3. FLUVIRIN [Suspect]
  4. CORTISONE [Suspect]
     Dosage: UNK
     Dates: start: 20090912
  5. ATENOLOL [Concomitant]

REACTIONS (9)
  - BITE [None]
  - DRUG EFFECT DECREASED [None]
  - DRUG INEFFECTIVE [None]
  - EYE SWELLING [None]
  - EYELID DISORDER [None]
  - EYELID OEDEMA [None]
  - GLAUCOMA [None]
  - HYPERSENSITIVITY [None]
  - PRURITUS [None]
